FAERS Safety Report 8969816 (Version 1)
Quarter: 2012Q4

REPORT INFORMATION
  Report Type: 
  Country: US (occurrence: US)
  Receive Date: 20121218
  Receipt Date: 20121218
  Transmission Date: 20130627
  Serious: No
  Sender: FDA-Public Use
  Company Number: US-BAYER-2012-132434

PATIENT
  Age: 43 Year
  Sex: Male
  Weight: 108.84 kg

DRUGS (3)
  1. ALEVE CAPLET/TABLET,MIDOL EXTENDED RELIEF CAPLET [Suspect]
     Indication: BACK ACHE
     Dosage: 8-10
     Route: 048
     Dates: start: 20121213
  2. ALEVE CAPLET/TABLET,MIDOL EXTENDED RELIEF CAPLET [Suspect]
     Indication: BACK ACHE
     Dosage: 6 tablets
     Dates: start: 20121214
  3. TRAMADOL [Concomitant]

REACTIONS (5)
  - Overdose [None]
  - Overdose [None]
  - Drug ineffective [None]
  - Overdose [None]
  - Abdominal pain upper [None]
